FAERS Safety Report 9514348 (Version 3)
Quarter: 2013Q4

REPORT INFORMATION
  Report Type: Report from Study
  Country: FR (occurrence: FR)
  Receive Date: 20130911
  Receipt Date: 20131013
  Transmission Date: 20140711
  Serious: Yes (Hospitalization)
  Sender: FDA-Public Use
  Company Number: PHHY2011FR91591

PATIENT
  Sex: Male
  Weight: 74 kg

DRUGS (12)
  1. MYFORTIC [Suspect]
     Indication: IMMUNOSUPPRESSION
     Dosage: 1440 MG, UNK
     Dates: start: 20100805, end: 20110315
  2. MYFORTIC [Suspect]
     Dosage: UNK
     Dates: start: 20110316
  3. NEORAL [Suspect]
     Indication: IMMUNOSUPPRESSION
     Dosage: UNK
     Dates: start: 20100805, end: 20100812
  4. CERTICAN [Suspect]
     Indication: IMMUNOSUPPRESSION
     Dosage: UNK
     Dates: start: 20110210, end: 20110315
  5. CERTICAN [Suspect]
     Dosage: UNK
     Dates: start: 20110316, end: 20110429
  6. SOLUPRED [Suspect]
     Indication: PROPHYLAXIS AGAINST TRANSPLANT REJECTION
     Dosage: 10 MG, DAILY PER OS
  7. SOLUPRED [Suspect]
     Dosage: UNK
     Dates: start: 20100515
  8. PROGRAF [Suspect]
     Indication: PROPHYLAXIS AGAINST TRANSPLANT REJECTION
     Dosage: 8 MG, DAILY PER OS
  9. PROGRAF [Suspect]
     Dosage: UNK
     Dates: start: 20110430
  10. IMMUNOGLOBULINS [Concomitant]
     Dosage: UNK
     Route: 042
  11. RITUXIMAB [Concomitant]
     Dosage: UNK
  12. BORTEZOMIB [Concomitant]
     Dosage: UNK

REACTIONS (5)
  - Chronic allograft nephropathy [Unknown]
  - Capillaritis [Unknown]
  - Glomerulonephritis [Unknown]
  - Transplant rejection [Unknown]
  - Drug ineffective [Unknown]
